FAERS Safety Report 6764281-1 (Version None)
Quarter: 2010Q2

REPORT INFORMATION
  Report Type: 
  Country: None (occurrence: None)
  Receive Date: 20100610
  Receipt Date: 20100602
  Transmission Date: 20101027
  Serious: Yes (Other)
  Sender: FDA-Public Use
  Company Number: CHPA2010US09500

PATIENT
  Sex: Female

DRUGS (1)
  1. PREVACID 24 HR [Suspect]
     Indication: DYSPEPSIA
     Dosage: 15 MG, QD
     Route: 048
     Dates: start: 20090101, end: 20100501

REACTIONS (4)
  - GASTRIC ULCER [None]
  - GASTROINTESTINAL DISORDER [None]
  - INTENTIONAL DRUG MISUSE [None]
  - INTESTINAL ULCER [None]
